FAERS Safety Report 8448120-9 (Version None)
Quarter: 2012Q2

REPORT INFORMATION
  Report Type: 
  Country: None (occurrence: None)
  Receive Date: 20120531
  Receipt Date: 20120516
  Transmission Date: 20120825
  Serious: Yes (Other)
  Sender: FDA-Public Use
  Company Number: 2012PROUSA01435

PATIENT
  Age: 76 Year
  Sex: Male
  Weight: 91.6 kg

DRUGS (9)
  1. ALLOPURINOL [Concomitant]
  2. METOPROLOL TARTRATE [Concomitant]
  3. FELODIPINE [Concomitant]
  4. COZAAR [Concomitant]
  5. SIMVASTATIN [Concomitant]
  6. XANAX [Concomitant]
  7. GLYBURIDE [Concomitant]
  8. TRIGENTA (BETAMETHASONE DIPROPIONATE, CLOTRIMAZOLE, GENTAMICIN SULFATE [Concomitant]
  9. PROVENGE [Suspect]
     Indication: PROSTATE CANCER METASTATIC
     Dosage: 250 ML, SINGLE, INTRAVENOUS
     Route: 042
     Dates: start: 20120514, end: 20120514

REACTIONS (1)
  - HYPOTENSION [None]
